FAERS Safety Report 6645822-1 (Version None)
Quarter: 2010Q1

REPORT INFORMATION
  Report Type: 
  Country: None (occurrence: None)
  Receive Date: 20100323
  Receipt Date: 20100309
  Transmission Date: 20100710
  Serious: Yes (Hospitalization)
  Sender: FDA-Public Use
  Company Number: IE-MEDIMMUNE-MEDI-0010736

PATIENT
  Sex: Male

DRUGS (2)
  1. SYNAGIS [Suspect]
     Route: 030
     Dates: start: 20091119
  2. OMEPRAZOLE [Concomitant]

REACTIONS (2)
  - PNEUMOCOCCAL INFECTION [None]
  - STREPTOCOCCAL INFECTION [None]
